FAERS Safety Report 8629517 (Version 3)
Quarter: 2013Q3

REPORT INFORMATION
  Report Type: Spontaneous
  Country: US (occurrence: US)
  Receive Date: 20120622
  Receipt Date: 20130925
  Transmission Date: 20140515
  Serious: Yes (Disabling)
  Sender: FDA-Public Use
  Company Number: US-ASTRAZENECA-2012SE35486

PATIENT
  Age: 45 Year
  Sex: Female

DRUGS (12)
  1. NEXIUM [Suspect]
     Indication: DIVERTICULITIS
     Dosage: TWO PER DAY
     Route: 048
     Dates: start: 1997
  2. NEXIUM [Suspect]
     Indication: GASTROOESOPHAGEAL REFLUX DISEASE
     Dosage: TWO PER DAY
     Route: 048
     Dates: start: 1997
  3. NEXIUM [Suspect]
     Indication: BARRETT^S OESOPHAGUS
     Dosage: TWO PER DAY
     Route: 048
     Dates: start: 1997
  4. NEXIUM [Suspect]
     Indication: DIVERTICULITIS
     Route: 048
     Dates: start: 20111022
  5. NEXIUM [Suspect]
     Indication: GASTROOESOPHAGEAL REFLUX DISEASE
     Route: 048
     Dates: start: 20111022
  6. NEXIUM [Suspect]
     Indication: BARRETT^S OESOPHAGUS
     Route: 048
     Dates: start: 20111022
  7. NEXIUM [Suspect]
     Indication: DIVERTICULITIS
     Route: 048
     Dates: start: 20110127
  8. NEXIUM [Suspect]
     Indication: GASTROOESOPHAGEAL REFLUX DISEASE
     Route: 048
     Dates: start: 20110127
  9. NEXIUM [Suspect]
     Indication: BARRETT^S OESOPHAGUS
     Route: 048
     Dates: start: 20110127
  10. PRILOSEC [Suspect]
     Route: 048
  11. TUMS [Concomitant]
  12. ALKA-SELTZER [Concomitant]

REACTIONS (4)
  - Epicondylitis [Unknown]
  - Osteoporosis [Unknown]
  - Rib fracture [Unknown]
  - Fall [Unknown]
